FAERS Safety Report 10064151 (Version 1)
Quarter: 2014Q2

REPORT INFORMATION
  Report Type: Spontaneous
  Country: CA (occurrence: None)
  Receive Date: 20140404
  Receipt Date: 20140404
  Transmission Date: 20141212
  Serious: Yes (Death, Life-Threatening, Hospitalization)
  Sender: FDA-Public Use
  Company Number: FK201401086

PATIENT
  Age: 75 Year
  Sex: Male

DRUGS (2)
  1. HEPARIN [Suspect]
     Indication: CARDIAC DISORDER
     Route: 042
     Dates: start: 20120517, end: 20120522
  2. FRAGMIN (DALTEPARIN SODIUM) [Concomitant]

REACTIONS (8)
  - Cardiac failure [None]
  - Renal failure [None]
  - Penile necrosis [None]
  - Heparin-induced thrombocytopenia [None]
  - Hydronephrosis [None]
  - Post procedural complication [None]
  - Renal failure acute [None]
  - Scrotal pain [None]
